FAERS Safety Report 9118748 (Version 1)
Quarter: 2013Q1

REPORT INFORMATION
  Report Type: Spontaneous
  Country: DE (occurrence: DE)
  Receive Date: 20130226
  Receipt Date: 20130226
  Transmission Date: 20140127
  Serious: Yes (Other)
  Sender: FDA-Public Use
  Company Number: DE-MYLANLABS-2013S1003241

PATIENT
  Age: 69 Year
  Sex: Male
  Weight: 90 kg

DRUGS (2)
  1. LITHIUM [Suspect]
     Indication: BIPOLAR DISORDER
     Dosage: 2 X 450 MG/DAY
     Route: 065
  2. PERAZINE [Concomitant]
     Indication: BIPOLAR DISORDER
     Dosage: 1 X 100 MG/DAY
     Route: 065

REACTIONS (1)
  - Atrioventricular block complete [Recovering/Resolving]
